FAERS Safety Report 6451509-0 (Version None)
Quarter: 2009Q4

REPORT INFORMATION
  Report Type: 
  Country: None (occurrence: None)
  Receive Date: 20091123
  Receipt Date: 20090819
  Transmission Date: 20100525
  Serious: No
  Sender: FDA-Public Use
  Company Number: US-BRISTOL-MYERS SQUIBB COMPANY-14746671

PATIENT
  Age: 45 Year
  Sex: Female

DRUGS (1)
  1. AVALIDE [Suspect]
     Dosage: 1 DF = 300/12.5MG LOT NUMBER 982063A EXP DATE: 28-FEB-2012
     Dates: start: 20081101

REACTIONS (3)
  - DRUG INEFFECTIVE [None]
  - HEART RATE INCREASED [None]
  - HYPERTENSION [None]
